FAERS Safety Report 24230882 (Version 1)
Quarter: 2024Q3

REPORT INFORMATION
  Report Type: Report from Study
  Country: US (occurrence: US)
  Receive Date: 20240821
  Receipt Date: 20240821
  Transmission Date: 20241017
  Serious: No
  Sender: ROCHE
  Company Number: US-ROCHE-10000058964

PATIENT
  Age: 68 Year
  Sex: Female

DRUGS (1)
  1. OCREVUS [Suspect]
     Active Substance: OCRELIZUMAB
     Indication: Multiple sclerosis
     Dosage: MORE DOSAGE INFORMATION IS OCREVUS SOLN FOR INFUS 20 MG / 1 ML.
     Route: 065
     Dates: start: 20190121

REACTIONS (3)
  - COVID-19 [Unknown]
  - Fall [Recovered/Resolved]
  - Off label use [Unknown]
